FAERS Safety Report 19647628 (Version 1)
Quarter: 2021Q3

REPORT INFORMATION
  Report Type: Spontaneous
  Country: ES (occurrence: ES)
  Receive Date: 20210802
  Receipt Date: 20210802
  Transmission Date: 20211014
  Serious: Yes (Death)
  Sender: FDA-Public Use
  Company Number: ES-CELGENEUS-ESP-20210706492

PATIENT
  Age: 79 Year
  Sex: Female
  Weight: 63 kg

DRUGS (4)
  1. FLUCONAZOL [Concomitant]
     Active Substance: FLUCONAZOLE
     Indication: PROPHYLAXIS
     Route: 065
     Dates: start: 20210205, end: 20210211
  2. PIPERACILLIN/TAZOBACTUM [Concomitant]
     Active Substance: PIPERACILLIN SODIUM\TAZOBACTAM SODIUM
     Indication: PROPHYLAXIS
     Route: 065
     Dates: start: 20210205, end: 20210211
  3. AZACITIDINE. [Suspect]
     Active Substance: AZACITIDINE
     Indication: ACUTE MYELOID LEUKAEMIA
     Dosage: 120 MILLIGRAM
     Route: 058
     Dates: start: 20210210
  4. MLN4924 [Suspect]
     Active Substance: PEVONEDISTAT
     Indication: ACUTE MYELOID LEUKAEMIA
     Dosage: 32 MILLIGRAM
     Route: 041
     Dates: start: 20210210

REACTIONS (2)
  - Subarachnoid haemorrhage [Fatal]
  - Subdural haemorrhage [Fatal]

NARRATIVE: CASE EVENT DATE: 20210211
